FAERS Safety Report 7624365-2 (Version None)
Quarter: 2011Q3

REPORT INFORMATION
  Report Type: 
  Country: None (occurrence: None)
  Receive Date: 20110712
  Receipt Date: 20110422
  Transmission Date: 20111222
  Serious: Yes (Hospitalization, Other)
  Sender: FDA-Public Use
  Company Number: USW201104-000005

PATIENT
  Age: 27 Year
  Sex: Female

DRUGS (1)
  1. BOTULINUM TOXIN TYPE B (BOTULINUM TOXIN TYPE B) (BOTULINUM TOXIN TYPE [Suspect]
     Indication: HYPERHIDROSIS
     Dosage: SUBCUTANEOUS
     Route: 058
     Dates: start: 20100629, end: 20100629

REACTIONS (5)
  - OEDEMA [None]
  - DYSPHAGIA [None]
  - VISUAL FIELD DEFECT [None]
  - OFF LABEL USE [None]
  - INCORRECT ROUTE OF DRUG ADMINISTRATION [None]
